FAERS Safety Report 23423696 (Version 4)
Quarter: 2024Q3

REPORT INFORMATION
  Report Type: Report from Study
  Country: CA (occurrence: CA)
  Receive Date: 20240119
  Receipt Date: 20240802
  Transmission Date: 20241016
  Serious: Yes (Hospitalization)
  Sender: ROCHE
  Company Number: CA-ROCHE-3493497

PATIENT
  Sex: Male

DRUGS (1)
  1. OCREVUS [Suspect]
     Active Substance: OCRELIZUMAB
     Indication: Relapsing-remitting multiple sclerosis
     Dosage: MORE DOSAGE INFORMATION IS 300 MG AT DAY 0 AND 14, THEN 600 MG EVERY 6 MONTHS
     Route: 042
     Dates: start: 20220713

REACTIONS (5)
  - Urinary tract infection [Recovering/Resolving]
  - Prostatic abscess [Recovering/Resolving]
  - Urinary bladder abscess [Recovering/Resolving]
  - Groin abscess [Recovering/Resolving]
  - Thrombosis [Recovered/Resolved]
